FAERS Safety Report 5704518-0 (Version None)
Quarter: 2008Q2

REPORT INFORMATION
  Report Type: 
  Country: None (occurrence: None)
  Receive Date: 20080409
  Receipt Date: 20080326
  Transmission Date: 20081010
  Serious: Yes (Other)
  Sender: FDA-Public Use
  Company Number: DSU-2008-00271

PATIENT
  Age: 30 Year
  Sex: Male

DRUGS (2)
  1. OLMETEC HCTZ 20/12.5 (HYDROCHLOROTHIAZIDE, OLMESARTAN MEDOXOMIL) (TABL [Suspect]
     Indication: BLOOD PRESSURE MANAGEMENT
     Dosage: 20/12.5 MG (QD), PER ORAL
     Route: 048
     Dates: start: 20071001, end: 20080101
  2. OLMETEC HCTZ 20/12.5 (HYDROCHLOROTHIAZIDE, OLMESARTAN MEDOXOMIL) (TABL [Suspect]
     Indication: BLOOD PRESSURE MANAGEMENT
     Dosage: 20/12.5 MG (QD), PER ORAL
     Route: 048
     Dates: start: 20080201

REACTIONS (1)
  - BLOOD PRESSURE INCREASED [None]
